FAERS Safety Report 11388034 (Version 8)
Quarter: 2020Q3

REPORT INFORMATION
  Report Type: Report from Study
  Country: CA (occurrence: CA)
  Receive Date: 20150817
  Receipt Date: 20200910
  Transmission Date: 20201102
  Serious: Yes (Hospitalization, Other)
  Sender: FDA-Public Use
  Company Number: CA-UCBSA-2015025983

PATIENT
  Age: 4 Year
  Sex: Male
  Weight: 3.82 kg

DRUGS (46)
  1. MULTIVITAMIN [Concomitant]
     Active Substance: VITAMINS
     Indication: PREGNANCY
     Dosage: 1, ONCE DAILY
     Route: 064
     Dates: end: 20150802
  2. MAGNESIUM [Concomitant]
     Active Substance: MAGNESIUM
     Indication: PREGNANCY
     Dosage: 250 MILLIGRAM 4.5 WEEKLY,  2.5 WEEKLY
     Route: 064
     Dates: start: 20141202, end: 20150802
  3. ALVESCO [Concomitant]
     Active Substance: CICLESONIDE
     Dosage: 400 MICROGRAM, ONCE DAILY (QD)
     Route: 064
     Dates: start: 20141118, end: 20150107
  4. VITAMIN D [VITAMIN D NOS] [Concomitant]
     Active Substance: VITAMIN D NOS
     Indication: PRODUCT USED FOR UNKNOWN INDICATION
     Dosage: 1000 INTERNATIONAL UNIT 4.5 WEEKLY
     Route: 064
     Dates: start: 20141118, end: 20150115
  5. FOLIC ACID. [Concomitant]
     Active Substance: FOLIC ACID
     Indication: PREGNANCY
     Dosage: 5 MG, ONCE DAILY (QD)
     Route: 064
     Dates: start: 20141202, end: 20150802
  6. ALVESCO [Concomitant]
     Active Substance: CICLESONIDE
     Dosage: 1200 MICROGRAM, ONCE DAILY (QD)
     Route: 064
     Dates: start: 20150110, end: 20150505
  7. BENADRYL [Concomitant]
     Active Substance: DIPHENHYDRAMINE HYDROCHLORIDE
     Indication: HYPERSENSITIVITY
     Dosage: 50 MILLIGRAM, ONCE DAILY (QD)
     Route: 064
     Dates: start: 20141216, end: 20150802
  8. VITAMIN C [Concomitant]
     Active Substance: ASCORBIC ACID
     Indication: PRODUCT USED FOR UNKNOWN INDICATION
     Dosage: 1000 MILLIGRAM 4.5 WEEKLY
     Route: 064
     Dates: start: 20141118, end: 20150115
  9. VITAMIN C [Concomitant]
     Active Substance: ASCORBIC ACID
     Dosage: 1000 MILLIGRAM 2.5 WEEKLY
     Route: 064
     Dates: start: 20150116, end: 20150802
  10. ZINC. [Concomitant]
     Active Substance: ZINC
     Indication: PREGNANCY
     Dosage: 1 TWICE WEEKLY
     Route: 064
     Dates: end: 20150802
  11. CAFFEINE. [Concomitant]
     Active Substance: CAFFEINE
     Indication: BLOOD GLUCOSE DECREASED
     Dosage: 1SERVING 3.5WEKLY
     Route: 064
     Dates: start: 20141118, end: 20150514
  12. SELENIUM [Concomitant]
     Active Substance: SELENIUM
     Indication: PRODUCT USED FOR UNKNOWN INDICATION
     Dosage: 100 MICROGRAM 4.5 WEEKLY
     Route: 064
     Dates: start: 20141118, end: 20150115
  13. ZINC. [Concomitant]
     Active Substance: ZINC
     Dosage: 50 MILLIGRAM 4.5 WEEKLY
     Route: 064
     Dates: start: 20150116, end: 20150802
  14. HYDROCHLOROTHIAZIDE. [Concomitant]
     Active Substance: HYDROCHLOROTHIAZIDE
     Indication: HYPERTENSION
     Dosage: 157.5 MILLILITER, ONCE DAILY (QD)
     Route: 064
  15. PRENATAL VITAMINS [Concomitant]
     Active Substance: VITAMINS
     Indication: PREGNANCY
     Dosage: 1 DOSAGE FORM, ONCE DAILY (QD)
     Route: 064
     Dates: start: 20141225, end: 20150802
  16. NOVORAPID [Concomitant]
     Active Substance: INSULIN ASPART
     Indication: TYPE 1 DIABETES MELLITUS
     Dosage: 36 INTERNATIONAL UNIT
     Route: 064
     Dates: start: 20141202, end: 20150802
  17. VENTOLIN [Concomitant]
     Active Substance: ALBUTEROL SULFATE
     Indication: ASTHMA
     Dosage: MULTILE DOSES AS NEEED
     Route: 064
     Dates: start: 20141202, end: 20150802
  18. DEXILANT [Concomitant]
     Active Substance: DEXLANSOPRAZOLE
     Indication: GASTROOESOPHAGEAL REFLUX DISEASE
     Dosage: 60 MILLIGRAM, ONCE DAILY (QD)
     Route: 064
     Dates: start: 20141202, end: 20150802
  19. BENADRYL [Concomitant]
     Active Substance: DIPHENHYDRAMINE HYDROCHLORIDE
     Dosage: 75 MILLIGRAM, ONCE DAILY (QD)
     Route: 064
     Dates: start: 20141118, end: 20141215
  20. CAFFEINE. [Concomitant]
     Active Substance: CAFFEINE
     Dosage: 1SERVING DAILY
     Route: 064
     Dates: start: 20150729, end: 20150802
  21. ZINC. [Concomitant]
     Active Substance: ZINC
     Indication: PRODUCT USED FOR UNKNOWN INDICATION
     Dosage: 50 MILLIGRAM 4.5 WEEKLY
     Route: 064
     Dates: start: 20141118, end: 20150115
  22. CHROMIUM [Concomitant]
     Active Substance: CHROMIC CHLORIDE\CHROMIUM
     Indication: PREGNANCY
     Dosage: 500 MICROGRAM 4.5 WEEKLY
     Route: 064
     Dates: start: 20141202, end: 20150115
  23. ALVESCO [Concomitant]
     Active Substance: CICLESONIDE
     Indication: ASTHMA
     Dosage: 8 PUFF
     Route: 064
     Dates: start: 20150506, end: 20150520
  24. ALVESCO [Concomitant]
     Active Substance: CICLESONIDE
     Indication: BRONCHITIS
     Dosage: 6 PUFF
     Route: 064
     Dates: start: 20150521, end: 20150524
  25. ALVESCO [Concomitant]
     Active Substance: CICLESONIDE
     Dosage: 800 MICROGRAM, ONCE DAILY (QD)
     Route: 064
     Dates: start: 20150108, end: 20150109
  26. ALVESCO [Concomitant]
     Active Substance: CICLESONIDE
     Dosage: 800 MICROGRAM, ONCE DAILY (QD)
     Route: 064
     Dates: start: 20150108, end: 20150109
  27. IRON [Concomitant]
     Active Substance: IRON
     Dosage: 150 MILLIGRAM, ONCE DAILY (QD)
     Route: 064
     Dates: start: 20150624, end: 20150714
  28. SELENIUM [Concomitant]
     Active Substance: SELENIUM
     Dosage: 100 MICROGRAM 2.5 WEEKLY
     Route: 064
     Dates: start: 20150116, end: 20150802
  29. TYLENOL [Concomitant]
     Active Substance: ACETAMINOPHEN
     Indication: MIGRAINE
     Dosage: 3 GRAM, ONCE DAILY (QD)
     Route: 064
     Dates: start: 20141118, end: 20150802
  30. VITAMIN B [Concomitant]
     Active Substance: VITAMIN B
     Dosage: 1 DOSAGE FORM4.5 WEEKLY
     Route: 064
     Dates: start: 20141118, end: 20150115
  31. CHROMIUM [Concomitant]
     Active Substance: CHROMIC CHLORIDE\CHROMIUM
     Dosage: 500 MICROGRAM 2.5 WEEKLY
     Route: 064
     Dates: start: 20150116, end: 20150802
  32. ALVESCO [Concomitant]
     Active Substance: CICLESONIDE
     Dosage: 4 PUFF
     Route: 064
     Dates: start: 20150525, end: 20150802
  33. METHOTREXATE. [Concomitant]
     Active Substance: METHOTREXATE
     Indication: RHEUMATOID ARTHRITIS
     Dosage: 05 MILLILITER
     Route: 064
     Dates: start: 20140829, end: 20140829
  34. VITAMIN B [Concomitant]
     Active Substance: VITAMIN B
     Indication: PRODUCT USED FOR UNKNOWN INDICATION
     Dosage: 1 DOSAGE FORM 2.5 WEEKLY
     Route: 064
     Dates: start: 20150116, end: 20150802
  35. CAFFEINE. [Concomitant]
     Active Substance: CAFFEINE
     Dosage: 1SERVING WEEKLY
     Route: 064
     Dates: start: 20150515, end: 20150728
  36. IRON [Concomitant]
     Active Substance: IRON
     Indication: ANAEMIA
     Dosage: 1PIL, MOB WILL TITRATE IN DOSAGE, EVERY 3 DAYS OR SO PER 32WK INT
     Route: 064
     Dates: start: 20150617, end: 20150617
  37. IRON [Concomitant]
     Active Substance: IRON
     Dosage: 300 MILLIGRAM, ONCE DAILY (QD)
     Route: 064
     Dates: start: 20150715, end: 20150802
  38. LIPITOR [Concomitant]
     Active Substance: ATORVASTATIN CALCIUM
     Indication: BLOOD CHOLESTEROL
     Dosage: 10 MILLIGRAM, ONCE DAILY (QD)
     Route: 064
     Dates: start: 20141118, end: 20141215
  39. CERTOLIZUMAB PEGOL [Suspect]
     Active Substance: CERTOLIZUMAB PEGOL
     Indication: RHEUMATOID ARTHRITIS
     Dosage: 200 MG, EV 2 WEEKS(QOW)
     Route: 064
     Dates: start: 20141202, end: 20150802
  40. CERTOLIZUMAB PEGOL [Suspect]
     Active Substance: CERTOLIZUMAB PEGOL
     Dosage: 200 MG, EV 2 WEEKS(QOW)
     Route: 063
     Dates: start: 201508
  41. VITAMIN B12 [Concomitant]
     Active Substance: CYANOCOBALAMIN
     Indication: PREGNANCY
     Dosage: 1, RWICE WEEKLY
     Route: 064
     Dates: end: 20150802
  42. FERAMAX [Concomitant]
     Active Substance: IRON\POLYSACCHARIDES
     Indication: RED BLOOD CELL ABNORMALITY
     Dosage: 150 MG, ONCE DAILY (QD)
     Route: 064
     Dates: end: 20150802
  43. CANESTEN [Concomitant]
     Active Substance: CLOTRIMAZOLE
     Indication: FUNGAL INFECTION
     Dosage: USED EXTERNALLY ONLY QD FOR1 WEEK,TOPICAL?VAGINAL,ANAL
     Route: 064
     Dates: start: 20150520, end: 20150526
  44. VITAMIN D [VITAMIN D NOS] [Concomitant]
     Active Substance: VITAMIN D NOS
     Dosage: 1000 INTERNATIONAL UNIT 2.5 WEEKLY
     Route: 064
     Dates: start: 20150115, end: 20150802
  45. AMOXICILLIN. [Concomitant]
     Active Substance: AMOXICILLIN
     Indication: BRONCHITIS
     Dosage: 250 MILLIGRAM, 3X/DAY (TID)
     Route: 064
     Dates: start: 20150112, end: 20150125
  46. AMOXICILLIN. [Concomitant]
     Active Substance: AMOXICILLIN
     Dosage: 250 MILLIGRAM, ONCE DAILY (QD)
     Route: 064
     Dates: start: 20150506, end: 20150519

REACTIONS (7)
  - Large for dates baby [Unknown]
  - Premature baby [Recovered/Resolved]
  - Anxiety [Unknown]
  - Maternal exposure before pregnancy [Unknown]
  - Exposure via breast milk [Unknown]
  - Blood glucose abnormal [Recovered/Resolved]
  - Autism spectrum disorder [Unknown]

NARRATIVE: CASE EVENT DATE: 20141202
